FAERS Safety Report 5932446-4 (Version None)
Quarter: 2008Q4

REPORT INFORMATION
  Report Type: 
  Country: None (occurrence: None)
  Receive Date: 20081028
  Receipt Date: 20081016
  Transmission Date: 20090506
  Serious: Yes (Other)
  Sender: FDA-Public Use
  Company Number: GB-ROCHE-592304

PATIENT
  Sex: Female
  Weight: 69.9 kg

DRUGS (5)
  1. XENICAL [Suspect]
     Indication: OBESITY
     Route: 048
     Dates: start: 20060101, end: 20070601
  2. LEVOTHYROXINE SODIUM [Concomitant]
     Indication: HYPOTHYROIDISM
     Route: 048
  3. FELODIPINE [Concomitant]
     Indication: HYPERTENSION
     Dosage: REPORTED AS VASCALPHA
     Route: 048
  4. BENDROFLUMETHIAZIDE [Concomitant]
     Indication: HYPERTENSION
     Dosage: REPORTED AS BENDCOFLUMETHIAZIDE
     Route: 048
  5. SIMVASTATIN [Concomitant]
     Dosage: ALSO INDICATED FOR HYPERTENSION. REPORTED AS FINVASTATIN
     Route: 048

REACTIONS (1)
  - HYPERTENSION [None]
